FAERS Safety Report 13557433 (Version 1)
Quarter: 2017Q2

REPORT INFORMATION
  Report Type: Spontaneous
  Country: US (occurrence: US)
  Receive Date: 20170518
  Receipt Date: 20170518
  Transmission Date: 20170830
  Serious: No
  Sender: FDA-Public Use
  Company Number: US-SHIRE-US201710649

PATIENT
  Sex: Male
  Weight: 111.11 kg

DRUGS (2)
  1. VYVANSE [Suspect]
     Active Substance: LISDEXAMFETAMINE DIMESYLATE
     Indication: APATHY
     Dosage: 50 MG, OTHER (HALF IN THE MORNING AND HALF A COUPLE OF HOURS LATER)
     Route: 048
  2. VYVANSE [Suspect]
     Active Substance: LISDEXAMFETAMINE DIMESYLATE
     Indication: DISTURBANCE IN ATTENTION

REACTIONS (11)
  - Drug prescribing error [Unknown]
  - Somnolence [Unknown]
  - Incorrect dose administered [Unknown]
  - Dry mouth [Unknown]
  - Wrong technique in product usage process [Unknown]
  - Therapeutic response unexpected [Unknown]
  - Drug ineffective [Unknown]
  - Unevaluable event [Unknown]
  - Disturbance in attention [Unknown]
  - Weight decreased [Unknown]
  - Therapeutic response shortened [Unknown]
